FAERS Safety Report 16315500 (Version 1)
Quarter: 2019Q2

REPORT INFORMATION
  Report Type: Spontaneous
  Country: US (occurrence: US)
  Receive Date: 20190515
  Receipt Date: 20190515
  Transmission Date: 20190711
  Serious: No
  Sender: FDA-Public Use
  Company Number: US-SA-2019SA125324

PATIENT
  Age: 64 Year
  Sex: Female

DRUGS (1)
  1. LANTUS SOLOSTAR [Suspect]
     Active Substance: INSULIN GLARGINE
     Indication: TYPE 2 DIABETES MELLITUS
     Dosage: 50 UNITS OF LANTUS IN THE MORNING AND 25 UNITS OF LANTUS IN THE EVENING
     Route: 065

REACTIONS (4)
  - Cough [Unknown]
  - Hypersensitivity [Unknown]
  - Inappropriate schedule of product administration [Unknown]
  - Sneezing [Unknown]
